FAERS Safety Report 4896476-6 (Version None)
Quarter: 2006Q1

REPORT INFORMATION
  Report Type: 
  Country: None (occurrence: None)
  Receive Date: 20060131
  Receipt Date: 20060118
  Transmission Date: 20060701
  Serious: Yes (Hospitalization)
  Sender: FDA-Public Use
  Company Number: US-KINGPHARMUSA00001-K200600044

PATIENT
  Age: 70 Year
  Sex: Female

DRUGS (7)
  1. ALTACE [Suspect]
     Dosage: UNK, QD
     Route: 048
     Dates: start: 20051001
  2. ACTONEL [Suspect]
     Dosage: UNK, QD
     Route: 048
  3. KARDEGIC                                /FRA/ [Suspect]
     Dosage: UNK, QD
     Route: 048
     Dates: start: 20051001
  4. ELISOR [Suspect]
     Dosage: UNK, QD
     Route: 048
     Dates: start: 20051001, end: 20051201
  5. DETENSIEL [Suspect]
     Dosage: UNK, QD
     Route: 048
     Dates: start: 20051001
  6. PLAVIX [Suspect]
     Dosage: 75 MG QD
     Route: 048
     Dates: start: 20051001, end: 20051201
  7. LEVOTHYROX [Concomitant]
     Dosage: UNK, UNK
     Route: 048

REACTIONS (4)
  - BLOOD ALKALINE PHOSPHATASE INCREASED [None]
  - FRACTURE [None]
  - GAMMA-GLUTAMYLTRANSFERASE INCREASED [None]
  - THROMBOCYTOPENIA [None]
